FAERS Safety Report 6203371-9 (Version None)
Quarter: 2009Q2

REPORT INFORMATION
  Report Type: 
  Country: None (occurrence: None)
  Receive Date: 20090527
  Receipt Date: 20090515
  Transmission Date: 20091009
  Serious: Yes (Congenital Anomaly, Other)
  Sender: FDA-Public Use
  Company Number: JP-AMGEN-US345287

PATIENT
  Sex: Female

DRUGS (3)
  1. ENBREL [Suspect]
     Indication: RHEUMATOID ARTHRITIS
     Dosage: UNSPECIFIED
     Route: 064
  2. PREDNISOLONE [Concomitant]
     Dosage: 1 MG, FREQUENCY UNSPECIFIED
     Route: 048
  3. PREDNISOLONE [Concomitant]
     Route: 048

REACTIONS (4)
  - DRUG EXPOSURE DURING PREGNANCY [None]
  - NEONATAL ASPHYXIA [None]
  - PREMATURE BABY [None]
  - SMALL FOR DATES BABY [None]
